FAERS Safety Report 21712236 (Version 1)
Quarter: 2022Q4

REPORT INFORMATION
  Report Type: Spontaneous
  Country: FR (occurrence: FR)
  Receive Date: 20221212
  Receipt Date: 20221212
  Transmission Date: 20230112
  Serious: Yes (Hospitalization, Other)
  Sender: FDA-Public Use
  Company Number: FR-BAUSCH-BL-2022-027007

PATIENT
  Age: 56 Year
  Sex: Female
  Weight: 81.5 kg

DRUGS (15)
  1. DILTIAZEM HYDROCHLORIDE [Suspect]
     Active Substance: DILTIAZEM HYDROCHLORIDE
     Indication: Hypertension
     Route: 048
     Dates: end: 20221027
  2. BUMETANIDE [Suspect]
     Active Substance: BUMETANIDE
     Indication: Hypertension
     Route: 048
     Dates: end: 20221027
  3. IMATINIB MESYLATE [Suspect]
     Active Substance: IMATINIB MESYLATE
     Indication: Chronic myeloid leukaemia
     Route: 048
     Dates: start: 20200825, end: 20220508
  4. DASATINIB [Suspect]
     Active Substance: DASATINIB
     Indication: Chronic myeloid leukaemia
     Route: 048
     Dates: start: 20220509, end: 20220926
  5. BOSULIF [Suspect]
     Active Substance: BOSUTINIB MONOHYDRATE
     Indication: Chronic myeloid leukaemia
     Route: 048
     Dates: start: 202209, end: 20221031
  6. JANUMET [Suspect]
     Active Substance: METFORMIN HYDROCHLORIDE\SITAGLIPTIN PHOSPHATE
     Indication: Type 2 diabetes mellitus
     Route: 048
     Dates: end: 20221027
  7. LANSOPRAZOLE [Concomitant]
     Active Substance: LANSOPRAZOLE
     Indication: Gastrooesophageal reflux disease
  8. METOCLOPRAMIDE HYDROCHLORIDE ANHYDROUS [Concomitant]
     Active Substance: METOCLOPRAMIDE HYDROCHLORIDE ANHYDROUS
     Indication: Nausea
  9. BETAXOLOL [Concomitant]
     Active Substance: BETAXOLOL
     Indication: Essential tremor
  10. LEVOTHYROXINE [Concomitant]
     Active Substance: LEVOTHYROXINE
     Indication: Hypothyroidism
  11. MONTELUKAST SODIUM [Concomitant]
     Active Substance: MONTELUKAST SODIUM
     Indication: Multiple allergies
  12. ALPRAZOLAM [Concomitant]
     Active Substance: ALPRAZOLAM
     Indication: Anxiety
  13. EBASTINE [Concomitant]
     Active Substance: EBASTINE
     Indication: Multiple allergies
  14. EXEMESTANE [Concomitant]
     Active Substance: EXEMESTANE
     Indication: Breast cancer
  15. ROSUVASTATIN [Concomitant]
     Active Substance: ROSUVASTATIN
     Indication: Hypercholesterolaemia

REACTIONS (1)
  - Acute kidney injury [Recovering/Resolving]
